FAERS Safety Report 8021895-9 (Version None)
Quarter: 2011Q4

REPORT INFORMATION
  Report Type: 
  Country: None (occurrence: None)
  Receive Date: 20111229
  Receipt Date: 20111215
  Transmission Date: 20120403
  Serious: Yes (Hospitalization, Other)
  Sender: FDA-Public Use
  Company Number: 2011CP000198

PATIENT
  Age: 84 Year
  Sex: Male

DRUGS (15)
  1. LEVOFLOXACIN [Suspect]
     Indication: PNEUMONIA
     Dosage: 1500 MG;1 DAY; IV
     Route: 042
     Dates: start: 20111024, end: 20111024
  2. PULMICORT [Concomitant]
  3. FUROSEMIDE [Suspect]
     Indication: CARDIAC FAILURE
     Dosage: 80 MG; 1 DAY;PO
     Route: 048
     Dates: start: 20111024, end: 20111103
  4. PREDNISOLONE [Concomitant]
  5. TARGOCID [Concomitant]
  6. ACETAMINOPHEN [Suspect]
     Indication: PYREXIA
     Dosage: 3 GRAM;1 DAY; IV
     Route: 042
     Dates: start: 20111024, end: 20111108
  7. CITALOPRAM [Concomitant]
  8. AMIKACIN [Concomitant]
  9. MAXIPIME [Suspect]
     Indication: PNEUMONIA
     Dosage: 4 GRAM; 1 DAY; IV
     Route: 042
     Dates: start: 20111024, end: 20111103
  10. ACETYLCYSTEINE [Concomitant]
  11. MASDIL [Concomitant]
  12. SINTROM [Suspect]
     Dosage: 4 MG, PO
     Route: 048
     Dates: start: 20111024, end: 20111105
  13. FLUCONAZOLE [Concomitant]
  14. OMEPRAZOLE [Concomitant]
  15. DIGOXIN [Concomitant]

REACTIONS (1)
  - THROMBOCYTOPENIA [None]
